FAERS Safety Report 12176864 (Version 4)
Quarter: 2016Q2

REPORT INFORMATION
  Report Type: Spontaneous
  Country: None (occurrence: CN)
  Receive Date: 20160314
  Receipt Date: 20160406
  Transmission Date: 20160815
  Serious: Yes (Hospitalization)
  Sender: FDA-Public Use
  Company Number: CN-MERCK KGAA-1049002

PATIENT

DRUGS (1)
  1. NOVOTHYROX [Suspect]
     Active Substance: LEVOTHYROXINE SODIUM

REACTIONS (8)
  - Suicidal ideation [None]
  - Restlessness [None]
  - Anxiety [None]
  - Disturbance in attention [None]
  - Drug hypersensitivity [None]
  - Tachycardia [None]
  - Respiratory tract oedema [None]
  - Insomnia [None]
